FAERS Safety Report 16134886 (Version 1)
Quarter: 2019Q1

REPORT INFORMATION
  Report Type: Spontaneous
  Country: US (occurrence: US)
  Receive Date: 20190329
  Receipt Date: 20190329
  Transmission Date: 20190418
  Serious: Yes (Other)
  Sender: FDA-Public Use
  Company Number: US-MAYNE PHARMA-2019MYN000204

PATIENT

DRUGS (1)
  1. LIOTHYRONINE [Suspect]
     Active Substance: LIOTHYRONINE
     Indication: PRODUCT USED FOR UNKNOWN INDICATION
     Dosage: 5 MCG, UNK

REACTIONS (6)
  - Urticaria [Unknown]
  - Throat irritation [Unknown]
  - Oedema peripheral [Unknown]
  - Oedema [Unknown]
  - Eye irritation [Unknown]
  - Skin exfoliation [Unknown]
